FAERS Safety Report 9542979 (Version 2)
Quarter: 2013Q4

REPORT INFORMATION
  Report Type: Spontaneous
  Country: IT (occurrence: IT)
  Receive Date: 20130923
  Receipt Date: 20131120
  Transmission Date: 20140711
  Serious: Yes (Life-Threatening)
  Sender: FDA-Public Use
  Company Number: IT-PFIZER INC-2013270497

PATIENT
  Age: 83 Year
  Sex: Male
  Weight: 58 kg

DRUGS (4)
  1. FARMORUBICINA [Suspect]
     Indication: NON-HODGKIN^S LYMPHOMA
     Dosage: 50 MG, MONTHLY
     Route: 042
     Dates: start: 20130913, end: 20130913
  2. VINBLASTINE [Interacting]
     Indication: NON-HODGKIN^S LYMPHOMA
     Dosage: 5 MG, MONTHLY
     Route: 042
     Dates: start: 20130913, end: 20130913
  3. GRANISETRON [Concomitant]
     Dosage: 3 MG, UNK
     Route: 042
     Dates: start: 20130913, end: 20130913
  4. PANTOPRAZOLE [Concomitant]
     Dosage: 40 MG, UNK
     Route: 042
     Dates: start: 20130913, end: 20130913

REACTIONS (6)
  - Drug interaction [Recovered/Resolved with Sequelae]
  - Anaphylactic reaction [Recovered/Resolved with Sequelae]
  - Bronchospasm [Recovered/Resolved with Sequelae]
  - Cardiac failure [Recovered/Resolved with Sequelae]
  - Hypertensive crisis [Recovered/Resolved with Sequelae]
  - Infusion related reaction [Recovered/Resolved with Sequelae]
